FAERS Safety Report 8244140-8 (Version None)
Quarter: 2012Q1

REPORT INFORMATION
  Report Type: 
  Country: None (occurrence: None)
  Receive Date: 20120329
  Receipt Date: 20120103
  Transmission Date: 20120608
  Serious: No
  Sender: FDA-Public Use
  Company Number: US-MYLANLABS-2011S1020318

PATIENT
  Age: 48 Year
  Sex: Female

DRUGS (2)
  1. METOPROLOL TARTRATE [Suspect]
     Indication: BLOOD PRESSURE INCREASED
     Dates: end: 20110101
  2. AMLODIPINE BESYLATE [Suspect]
     Indication: BLOOD PRESSURE INCREASED
     Dates: end: 20110101

REACTIONS (4)
  - HYPERSENSITIVITY [None]
  - PRURITUS [None]
  - FACIAL PAIN [None]
  - RASH PUSTULAR [None]
